FAERS Safety Report 5732884-9 (Version None)
Quarter: 2008Q2

REPORT INFORMATION
  Report Type: 
  Country: None (occurrence: None)
  Receive Date: 20080509
  Receipt Date: 20080205
  Transmission Date: 20081010
  Serious: No
  Sender: FDA-Public Use
  Company Number: A0707462A

PATIENT
  Age: 63 Year
  Sex: Male

DRUGS (4)
  1. COREG CR [Suspect]
     Indication: DRUG USE FOR UNKNOWN INDICATION
     Dosage: 40MG PER DAY
     Route: 048
     Dates: start: 20080121
  2. IMDUR [Concomitant]
  3. RANEXA [Concomitant]
  4. XANAX [Concomitant]

REACTIONS (1)
  - MEDICATION RESIDUE [None]
